FAERS Safety Report 7460135-6 (Version None)
Quarter: 2011Q2

REPORT INFORMATION
  Report Type: 
  Country: None (occurrence: None)
  Receive Date: 20110505
  Receipt Date: 20110428
  Transmission Date: 20111010
  Serious: Yes (Hospitalization)
  Sender: FDA-Public Use
  Company Number: DE-ELI_LILLY_AND_COMPANY-DE201104007737

PATIENT
  Age: 58 Year
  Sex: Male

DRUGS (5)
  1. ASPIRIN [Concomitant]
     Dosage: 100 DF, UNKNOWN
  2. ERGENYL [Concomitant]
  3. JADIT [Concomitant]
  4. HUMALOG [Suspect]
     Indication: DIABETES MELLITUS
     Dosage: UNK, PRN
     Route: 058
  5. MARCUMAR [Concomitant]

REACTIONS (3)
  - BREAST INFLAMMATION [None]
  - BREAST ABSCESS [None]
  - BLOOD GLUCOSE INCREASED [None]
